FAERS Safety Report 10284581 (Version 2)
Quarter: 2014Q3

REPORT INFORMATION
  Report Type: Spontaneous
  Country: US (occurrence: US)
  Receive Date: 20140708
  Receipt Date: 20140805
  Transmission Date: 20150326
  Serious: Yes (Life-Threatening, Hospitalization, Disabling, Other)
  Sender: FDA-Public Use
  Company Number: US-BAXTER-2014BAX036980

PATIENT
  Sex: Female
  Weight: 120.31 kg

DRUGS (1)
  1. GAMMAGARD LIQUID [Suspect]
     Active Substance: HUMAN IMMUNOGLOBULIN G
     Indication: SELECTIVE POLYSACCHARIDE ANTIBODY DEFICIENCY
     Route: 042
     Dates: start: 201210, end: 201401

REACTIONS (3)
  - Asthma [Unknown]
  - Sinusitis [Unknown]
  - Coagulopathy [Unknown]
